FAERS Safety Report 21204100 (Version 2)
Quarter: 2022Q3

REPORT INFORMATION
  Report Type: Spontaneous
  Country: JP (occurrence: JP)
  Receive Date: 20220812
  Receipt Date: 20220913
  Transmission Date: 20221026
  Serious: Yes (Other)
  Sender: FDA-Public Use
  Company Number: JP-NOVARTISPH-NVSJ2022JP095303

PATIENT
  Sex: Male

DRUGS (2)
  1. TAFINLAR [Suspect]
     Active Substance: DABRAFENIB MESYLATE
     Indication: Malignant melanoma
     Dosage: UNK
     Route: 048
  2. MEKINIST [Suspect]
     Active Substance: TRAMETINIB DIMETHYL SULFOXIDE
     Indication: Malignant melanoma
     Dosage: UNK
     Route: 048

REACTIONS (4)
  - Vogt-Koyanagi-Harada disease [Unknown]
  - Visual acuity reduced [Unknown]
  - Eye disorder [Unknown]
  - Retinal pigment epitheliopathy [Not Recovered/Not Resolved]

NARRATIVE: CASE EVENT DATE: 20220808
